FAERS Safety Report 11054343 (Version 1)
Quarter: 2015Q2

REPORT INFORMATION
  Report Type: Report from Study
  Country: CN (occurrence: CN)
  Receive Date: 20150422
  Receipt Date: 20150422
  Transmission Date: 20150821
  Serious: Yes (Other)
  Sender: FDA-Public Use
  Company Number: CN-ROCHE-1566173

PATIENT
  Age: 57 Year
  Sex: Male

DRUGS (7)
  1. METHOTREXATE [Suspect]
     Active Substance: METHOTREXATE
     Dosage: DAY 2 AND 9.
     Route: 037
  2. CYTARABINE. [Suspect]
     Active Substance: CYTARABINE
     Indication: DIFFUSE LARGE B-CELL LYMPHOMA
     Dosage: 1 G/M2.?(1 HR INFUSION IN DAY 2 AND 3).
     Route: 065
  3. DEXAMETHASONE. [Suspect]
     Active Substance: DEXAMETHASONE
     Indication: DIFFUSE LARGE B-CELL LYMPHOMA
     Dosage: (12 HRS INFUSION IN DAY 2, 3 AND 4).
     Route: 065
  4. CYTARABINE. [Suspect]
     Active Substance: CYTARABINE
     Dosage: DAY 2 AND 9.
     Route: 037
  5. IDARUBICIN [Suspect]
     Active Substance: IDARUBICIN
     Indication: DIFFUSE LARGE B-CELL LYMPHOMA
     Dosage: DAY 2 AND 3
     Route: 065
  6. RITUXIMAB [Suspect]
     Active Substance: RITUXIMAB
     Indication: DIFFUSE LARGE B-CELL LYMPHOMA
     Dosage: DAY 1
     Route: 042
  7. METHOTREXATE [Suspect]
     Active Substance: METHOTREXATE
     Indication: DIFFUSE LARGE B-CELL LYMPHOMA
     Dosage: 2 G/M2.?(6 HRS INFUSION IN DAY 4).
     Route: 065

REACTIONS (1)
  - Haematotoxicity [Recovered/Resolved]
